FAERS Safety Report 22308633 (Version 1)
Quarter: 2023Q2

REPORT INFORMATION
  Report Type: Spontaneous
  Country: US (occurrence: None)
  Receive Date: 20230511
  Receipt Date: 20230511
  Transmission Date: 20230721
  Serious: No
  Sender: FDA-Public Use
  Company Number: US-ROCHE-3271557

PATIENT
  Age: 58 Year
  Sex: Female

DRUGS (1)
  1. OCREVUS [Suspect]
     Active Substance: OCRELIZUMAB
     Indication: Primary progressive multiple sclerosis
     Dosage: 300 MG EVERY 2 WEEKS THEN 600 MG EVERY 6 MONTHS THEREAFTER?DOT: 18/JAN/2023,04/JAN/2023
     Route: 065

REACTIONS (1)
  - Dizziness [Recovering/Resolving]
